FAERS Safety Report 10074025 (Version 1)
Quarter: 2014Q2

REPORT INFORMATION
  Report Type: Spontaneous
  Country: US (occurrence: US)
  Receive Date: 20140411
  Receipt Date: 20140411
  Transmission Date: 20141212
  Serious: Yes (Hospitalization, Other)
  Sender: FDA-Public Use
  Company Number: US-MALLINCKRODT-T201401781

PATIENT
  Age: 16 Year
  Sex: Male

DRUGS (3)
  1. SODIUM IODIDE (I 131) [Suspect]
     Indication: RADIOACTIVE IODINE THERAPY
     Dosage: 15 MCI, SINGLE
     Route: 065
  2. METHIMAZOLE [Concomitant]
     Dosage: 20 MG, UNK
     Route: 065
  3. PRANOLOL [Concomitant]
     Dosage: 10 MG, UNK
     Route: 065

REACTIONS (4)
  - Hungry bone syndrome [Unknown]
  - Hypothyroidism [Unknown]
  - Hypocalcaemia [Unknown]
  - Blood 25-hydroxycholecalciferol decreased [Unknown]
